FAERS Safety Report 15249962 (Version 1)
Quarter: 2018Q3

REPORT INFORMATION
  Report Type: Spontaneous
  Country: US (occurrence: US)
  Receive Date: 20180807
  Receipt Date: 20180807
  Transmission Date: 20181010
  Serious: No
  Sender: FDA-Public Use
  Company Number: US-GLAXOSMITHKLINE-US2018137883

PATIENT
  Age: 25 Year
  Sex: Female

DRUGS (1)
  1. EXCEDRIN MIGRAINE [Suspect]
     Active Substance: ACETAMINOPHEN\ASPIRIN\CAFFEINE
     Indication: MIGRAINE
     Dosage: 5 DF, UNK
     Dates: start: 20180730, end: 20180730

REACTIONS (6)
  - Hypoaesthesia [Unknown]
  - Feeling jittery [Unknown]
  - Overdose [Unknown]
  - Dyspnoea [Unknown]
  - Heart rate increased [Unknown]
  - Tinnitus [Unknown]

NARRATIVE: CASE EVENT DATE: 20180730
